FAERS Safety Report 4738215-5 (Version None)
Quarter: 2005Q3

REPORT INFORMATION
  Report Type: 
  Country: None (occurrence: None)
  Receive Date: 20050729
  Receipt Date: 20050718
  Transmission Date: 20060218
  Serious: Yes (Other)
  Sender: FDA-Public Use
  Company Number: 2005-130522-NL

PATIENT
  Age: 58 Year
  Sex: Female
  Weight: 87 kg

DRUGS (2)
  1. TICE BCG [Suspect]
     Indication: BLADDER CANCER
     Dosage: CFU INTRAVESICAL
     Route: 043
     Dates: start: 20050712
  2. VITAMINS [Concomitant]

REACTIONS (2)
  - DYSARTHRIA [None]
  - VISUAL DISTURBANCE [None]
